FAERS Safety Report 19209901 (Version 2)
Quarter: 2022Q1

REPORT INFORMATION
  Report Type: Spontaneous
  Country: AR (occurrence: AR)
  Receive Date: 20210504
  Receipt Date: 20220214
  Transmission Date: 20220423
  Serious: Yes (Other)
  Sender: FDA-Public Use
  Company Number: AR-PFIZER INC-2020351171

PATIENT
  Age: 81 Year
  Sex: Female

DRUGS (6)
  1. ENBREL [Suspect]
     Active Substance: ETANERCEPT
     Indication: Rheumatoid arthritis
     Dosage: 50 MG EVERY 10 DAYS
     Route: 065
     Dates: start: 20181112
  2. ENBREL [Suspect]
     Active Substance: ETANERCEPT
     Dosage: 50 MG, WEEKLY
     Route: 065
     Dates: start: 20181112
  3. ENBREL [Suspect]
     Active Substance: ETANERCEPT
     Dosage: 50 MG EVERY 6 DAYS
     Route: 065
     Dates: start: 2020
  4. ENBREL [Suspect]
     Active Substance: ETANERCEPT
     Dosage: 50 MG EVERY 10 DAYS
     Route: 065
     Dates: start: 2020
  5. ENBREL [Suspect]
     Active Substance: ETANERCEPT
     Dosage: 50 MG EVERY 10 DAYS
     Route: 065
     Dates: start: 2020
  6. ENBREL [Suspect]
     Active Substance: ETANERCEPT
     Dosage: 50 MG EVERY 10 DAYS
     Route: 065

REACTIONS (7)
  - Off label use [Recovered/Resolved]
  - Mobility decreased [Unknown]
  - Visual impairment [Unknown]
  - Intentional product misuse [Recovered/Resolved]
  - Deafness [Not Recovered/Not Resolved]
  - Malaise [Not Recovered/Not Resolved]
  - Pain [Unknown]

NARRATIVE: CASE EVENT DATE: 20181112
